FAERS Safety Report 8586188-X (Version None)
Quarter: 2012Q3

REPORT INFORMATION
  Report Type: 
  Country: None (occurrence: None)
  Receive Date: 20120810
  Receipt Date: 20120806
  Transmission Date: 20120928
  Serious: Yes (Hospitalization)
  Sender: FDA-Public Use
  Company Number: GB-GLAXOSMITHKLINE-B0820642A

PATIENT
  Age: 59 Year
  Sex: Female
  Weight: 83.5 kg

DRUGS (7)
  1. DEPAKOTE [Suspect]
     Indication: BIPOLAR DISORDER
     Dosage: 2250MG PER DAY
     Route: 048
  2. HYDROXYCHLOROQUINE SULFATE [Concomitant]
  3. LAMOTRIGINE [Suspect]
     Indication: BIPOLAR DISORDER
     Dosage: 100MG PER DAY
     Route: 048
  4. VENLAFAXINE [Concomitant]
  5. SIMVASTATIN [Concomitant]
  6. QUETIAPINE [Concomitant]
  7. ASPIRIN [Concomitant]

REACTIONS (5)
  - DRUG INTERACTION [None]
  - RASH MACULO-PAPULAR [None]
  - C-REACTIVE PROTEIN INCREASED [None]
  - MUSCULAR WEAKNESS [None]
  - STEVENS-JOHNSON SYNDROME [None]
